FAERS Safety Report 4648381-8 (Version None)
Quarter: 2005Q2

REPORT INFORMATION
  Report Type: 
  Country: None (occurrence: None)
  Receive Date: 20050429
  Receipt Date: 20050418
  Transmission Date: 20051028
  Serious: Yes (Hospitalization)
  Sender: FDA-Public Use
  Company Number: 200513398GDDC

PATIENT
  Sex: Female

DRUGS (3)
  1. DOCETAXEL [Suspect]
     Route: 042
     Dates: start: 20041124, end: 20050217
  2. CISPLATIN [Suspect]
     Route: 042
     Dates: start: 20041124, end: 20050217
  3. ATACAND HCT [Concomitant]
     Indication: HYPERTENSION
     Route: 048
     Dates: start: 20020301

REACTIONS (3)
  - NAUSEA [None]
  - RENAL FAILURE ACUTE [None]
  - VOMITING [None]
